FAERS Safety Report 13526881 (Version 2)
Quarter: 2017Q2

REPORT INFORMATION
  Report Type: Report from Study
  Country: US (occurrence: US)
  Receive Date: 20170509
  Receipt Date: 20170530
  Transmission Date: 20170830
  Serious: Yes (Hospitalization, Other)
  Sender: FDA-Public Use
  Company Number: US-EISAI MEDICAL RESEARCH-EC-2016-023121

PATIENT
  Age: 49 Year
  Sex: Male

DRUGS (3)
  1. LENVIMA [Suspect]
     Active Substance: LENVATINIB
     Dosage: UNKNOWN
     Route: 048
     Dates: start: 2017, end: 201705
  2. LENVIMA [Suspect]
     Active Substance: LENVATINIB
     Indication: THYROID CANCER
     Route: 048
     Dates: start: 20161202, end: 2017
  3. LENVIMA [Suspect]
     Active Substance: LENVATINIB
     Dosage: UNKNOWN
     Route: 048
     Dates: start: 2017, end: 2017

REACTIONS (9)
  - Femur fracture [Not Recovered/Not Resolved]
  - Nausea [Recovering/Resolving]
  - Bone disorder [Recovering/Resolving]
  - Pulmonary embolism [Recovered/Resolved]
  - Back pain [Recovering/Resolving]
  - Constipation [Recovered/Resolved]
  - Hypertension [Recovering/Resolving]
  - Pulmonary mass [Recovering/Resolving]
  - Rhinorrhoea [Recovered/Resolved]

NARRATIVE: CASE EVENT DATE: 20161205
